FAERS Safety Report 4726779-7 (Version None)
Quarter: 2005Q3

REPORT INFORMATION
  Report Type: 
  Country: None (occurrence: None)
  Receive Date: 20050725
  Receipt Date: 20050422
  Transmission Date: 20060218
  Serious: No
  Sender: FDA-Public Use
  Company Number: USA050496429

PATIENT
  Age: 59 Year
  Sex: Male

DRUGS (7)
  1. STRATTERA [Suspect]
     Indication: APATHY
     Dosage: 40 MG/1 DAY
     Dates: start: 20050421
  2. LITHIUM [Concomitant]
  3. MOBIC [Concomitant]
  4. PRILOSEC (OMEPRAZOLE RATIOPHARM) [Concomitant]
  5. ASPIRIN [Concomitant]
  6. TRIAZOLAM [Concomitant]
  7. VITAMIN [Concomitant]

REACTIONS (5)
  - ABDOMINAL PAIN UPPER [None]
  - ENERGY INCREASED [None]
  - INITIAL INSOMNIA [None]
  - MALAISE [None]
  - PILOERECTION [None]
